FAERS Safety Report 14058096 (Version 1)
Quarter: 2017Q4

REPORT INFORMATION
  Report Type: Spontaneous
  Country: IT (occurrence: IT)
  Receive Date: 20171006
  Receipt Date: 20171006
  Transmission Date: 20180321
  Serious: Yes (Other)
  Sender: FDA-Public Use
  Company Number: PHHY2017IT146047

PATIENT
  Age: 61 Year
  Sex: Male

DRUGS (2)
  1. LAMIVUDINE. [Concomitant]
     Active Substance: LAMIVUDINE
     Indication: PROPHYLAXIS
     Route: 065
  2. IMATINIB [Suspect]
     Active Substance: IMATINIB
     Indication: CHRONIC MYELOID LEUKAEMIA
     Dosage: 800 MG, QD
     Route: 065

REACTIONS (4)
  - Muscle spasms [Unknown]
  - Drug intolerance [Unknown]
  - Conjunctival haemorrhage [Unknown]
  - Periorbital oedema [Unknown]
